FAERS Safety Report 5928164-9 (Version None)
Quarter: 2008Q4

REPORT INFORMATION
  Report Type: 
  Country: None (occurrence: None)
  Receive Date: 20081023
  Receipt Date: 20081017
  Transmission Date: 20090506
  Serious: Yes (Other)
  Sender: FDA-Public Use
  Company Number: DE-ABBOTT-08P-062-0482595-00

PATIENT
  Sex: Male

DRUGS (2)
  1. EPROSARTAN-CT [Suspect]
     Indication: DRUG USE FOR UNKNOWN INDICATION
     Route: 048
  2. EPROSARTAN-CT [Suspect]
     Dosage: DOSE REDUCED
     Route: 048

REACTIONS (3)
  - BLOOD PRESSURE DECREASED [None]
  - COMA [None]
  - EPILEPSY [None]
